FAERS Safety Report 25441742 (Version 1)
Quarter: 2025Q2

REPORT INFORMATION
  Report Type: Spontaneous
  Country: CN (occurrence: CN)
  Receive Date: 20250616
  Receipt Date: 20250616
  Transmission Date: 20250716
  Serious: Yes (Other)
  Sender: DR REDDYS
  Company Number: None

PATIENT
  Age: 33 Year
  Sex: Female
  Weight: 47.0 kg

DRUGS (3)
  1. OLANZAPINE [Suspect]
     Active Substance: OLANZAPINE
     Indication: Schizophreniform disorder
     Dosage: 10MG,QD
     Route: 048
     Dates: start: 20250520, end: 20250520
  2. VALPROATE MAGNESIUM [Suspect]
     Active Substance: VALPROATE MAGNESIUM
     Indication: Schizophreniform disorder
     Dosage: MAGNESIUM VALPROATE SUSTAINED RELEASE TABLETS 0.25G,TID
     Route: 048
     Dates: start: 20250520, end: 20250521
  3. Olanzapine Oral Soluble Film [Concomitant]
     Indication: Schizophreniform disorder
     Dosage: OLANZAPINE ORAL SOLUBLE FILM (ORAL COLLAPSE TABLETS)?? 5MG,BID
     Route: 048
     Dates: start: 20250520, end: 20250526

REACTIONS (1)
  - Hypokalaemia [Recovering/Resolving]

NARRATIVE: CASE EVENT DATE: 20250520
